FAERS Safety Report 15238663 (Version 2)
Quarter: 2018Q3

REPORT INFORMATION
  Report Type: Report from Study
  Country: None (occurrence: BR)
  Receive Date: 20180803
  Receipt Date: 20180814
  Transmission Date: 20181010
  Serious: Yes (Other)
  Sender: FDA-Public Use
  Company Number: BR-ABBVIE-18K-020-2439128-00

PATIENT
  Age: 63 Year
  Sex: Female
  Weight: 63 kg

DRUGS (6)
  1. HUMIRA [Suspect]
     Active Substance: ADALIMUMAB
     Indication: RHEUMATOID ARTHRITIS
     Route: 058
     Dates: start: 201411, end: 201801
  2. PRELONE [Concomitant]
     Active Substance: PREDNISOLONE
     Indication: HYPERSENSITIVITY
  3. PRELONE [Concomitant]
     Active Substance: PREDNISOLONE
     Indication: PRURITUS
  4. PRELONE [Concomitant]
     Active Substance: PREDNISOLONE
  5. METHOTREXATE. [Concomitant]
     Active Substance: METHOTREXATE
     Indication: RHEUMATOID ARTHRITIS
     Dates: start: 2008, end: 201709
  6. PREDNISOLONE. [Concomitant]
     Active Substance: PREDNISOLONE
     Indication: RHEUMATOID ARTHRITIS
     Dates: start: 2008

REACTIONS (5)
  - Drug hypersensitivity [Unknown]
  - Urticaria [Recovering/Resolving]
  - Prurigo [Unknown]
  - Pruritus allergic [Recovered/Resolved]
  - Eosinophilia [Recovered/Resolved]

NARRATIVE: CASE EVENT DATE: 201708
